FAERS Safety Report 10717671 (Version 1)
Quarter: 2015Q1

REPORT INFORMATION
  Report Type: Spontaneous
  Country: US (occurrence: US)
  Receive Date: 20150116
  Receipt Date: 20150116
  Transmission Date: 20150721
  Serious: Yes (Other)
  Sender: FDA-Public Use
  Company Number: US-TEVA-534682USA

PATIENT
  Age: 63 Year
  Sex: Male

DRUGS (3)
  1. PEGYLATED INTERFERON ALPHA NOS [Suspect]
     Active Substance: PEGINTERFERON ALFA-2A OR PEGINTERFERON ALFA-2B
     Indication: CHRONIC HEPATITIS C
     Dosage: 180 MCG/ML, WEEKLY
     Route: 065
  2. TELAPREVIR [Suspect]
     Active Substance: TELAPREVIR
     Indication: CHRONIC HEPATITIS C
     Dosage: 180 MCG/ML, WEEKLY
     Route: 065
  3. RIBAVIRIN. [Suspect]
     Active Substance: RIBAVIRIN
     Indication: CHRONIC HEPATITIS C
     Dosage: 180 MCG/ML, WEEKLY
     Route: 065

REACTIONS (1)
  - Pancytopenia [Recovered/Resolved]
